FAERS Safety Report 18182965 (Version 1)
Quarter: 2020Q3

REPORT INFORMATION
  Report Type: Other
  Country: ES (occurrence: ES)
  Receive Date: 20200821
  Receipt Date: 20200821
  Transmission Date: 20201103
  Serious: Yes (Other)
  Sender: FDA-Public Use
  Company Number: ES-COLLEGIUM PHARMACEUTICAL, INC.-ES-2020COL000605

PATIENT
  Age: 76 Year
  Sex: Female
  Weight: 79.4 kg

DRUGS (1)
  1. TAPENTADOL EXTENDED RELEASE [Suspect]
     Active Substance: TAPENTADOL
     Indication: ARTHRALGIA
     Dosage: 50 MG, BID
     Route: 048
     Dates: start: 20200621, end: 20200621

REACTIONS (3)
  - Dysarthria [Recovered/Resolved]
  - Gait disturbance [Recovered/Resolved]
  - Urinary incontinence [Recovered/Resolved]

NARRATIVE: CASE EVENT DATE: 20200621
